FAERS Safety Report 17491876 (Version 1)
Quarter: 2020Q1

REPORT INFORMATION
  Report Type: Spontaneous
  Country: US (occurrence: US)
  Receive Date: 20200304
  Receipt Date: 20200304
  Transmission Date: 20200409
  Serious: No
  Sender: FDA-Public Use
  Company Number: US-CIPLA LTD.-2020US00740

PATIENT

DRUGS (3)
  1. BUDESONIDE. [Suspect]
     Active Substance: BUDESONIDE
     Indication: MULTIPLE ALLERGIES
     Dosage: UNK, BID (2 TIMES A DAY)
     Route: 065
  2. BUDESONIDE. [Suspect]
     Active Substance: BUDESONIDE
     Indication: NASAL DISCOMFORT
  3. BUDESONIDE. [Suspect]
     Active Substance: BUDESONIDE
     Indication: NASAL OBSTRUCTION

REACTIONS (1)
  - Off label use [Unknown]
